FAERS Safety Report 16575940 (Version 1)
Quarter: 2019Q3

REPORT INFORMATION
  Report Type: Spontaneous
  Country: DE (occurrence: DE)
  Receive Date: 20190716
  Receipt Date: 20190716
  Transmission Date: 20191004
  Serious: Yes (Death, Hospitalization, Other)
  Sender: FDA-Public Use
  Company Number: DE-AUROBINDO-AUR-APL-2019-040144

PATIENT

DRUGS (28)
  1. VIMPAT [Suspect]
     Active Substance: LACOSAMIDE
     Indication: EPILEPSY
     Dosage: 900 MILLIGRAM, DAILY, 300 MILLIGRAM, 3X/DAY (TID)
     Route: 065
     Dates: start: 201705
  2. VIMPAT [Suspect]
     Active Substance: LACOSAMIDE
     Dosage: 400 MILLIGRAM, DAILY (400 UNK)
     Route: 065
     Dates: start: 201710
  3. TAVOR [Concomitant]
     Indication: SEIZURE
     Dosage: 2.5 MILLIGRAM, (2.5 MILLIGRAM, UNK)
     Route: 002
  4. MELPERONE [Concomitant]
     Active Substance: MELPERONE
     Indication: PRODUCT USED FOR UNKNOWN INDICATION
     Dosage: UNK
     Route: 065
  5. DORMICUM [Concomitant]
     Indication: PAIN
     Dosage: 7.5 MILLIGRAM, (7.5 MILLIGRAM, UNK)
     Route: 065
  6. BACLOFEN DURA [Concomitant]
     Indication: PRODUCT USED FOR UNKNOWN INDICATION
     Dosage: 30 MILLIGRAM, DAILY (10 MILLIGRAM, 3X/DAY (TID)
     Route: 065
  7. VIMPAT [Suspect]
     Active Substance: LACOSAMIDE
     Dosage: 900 MILLIGRAM, DAILY (300 MILLIGRAM, 3X/DAY (TID)
     Route: 065
  8. CHLORPROTHIXEN [Concomitant]
     Active Substance: CHLORPROTHIXENE HYDROCHLORIDE
     Indication: PRODUCT USED FOR UNKNOWN INDICATION
     Dosage: UNK, 1 DAILY
     Route: 065
  9. FERROSANOL [Concomitant]
     Active Substance: FERROUS GLUCONATE
     Indication: PRODUCT USED FOR UNKNOWN INDICATION
     Dosage: UNK
     Route: 065
  10. BRIVIACT [Suspect]
     Active Substance: BRIVARACETAM
     Dosage: 50 MILLIGRAM, DAILY, 25 MILLIGRAM, 2X/DAY (BID)
     Route: 005
  11. PANTOPRAZOLE [Concomitant]
     Active Substance: PANTOPRAZOLE
     Indication: PRODUCT USED FOR UNKNOWN INDICATION
     Dosage: UNK
     Route: 065
  12. PANTOZOLE [Concomitant]
     Active Substance: PANTOPRAZOLE SODIUM
     Indication: PRODUCT USED FOR UNKNOWN INDICATION
     Dosage: 20 MILLIGRAM, DAILY, (20 MILLIGRAM, ONCE DAILY (QD)
     Route: 065
  13. DIAZEPAM DESITIN [Concomitant]
     Indication: SEIZURE
     Dosage: 10 MILLIGRAM, UNK
     Route: 054
  14. LEVETIRACETAM. [Suspect]
     Active Substance: LEVETIRACETAM
     Dosage: 3000 MILLIGRAM, DAILY
     Route: 065
  15. LEVETIRACETAM. [Suspect]
     Active Substance: LEVETIRACETAM
     Dosage: 1000 MILLIGRAM, DAILY (500 MILLIGRAM, 2X/DAY (BID)
     Route: 005
  16. BUCCOLAM [Concomitant]
     Active Substance: MIDAZOLAM HYDROCHLORIDE
     Indication: SEIZURE
     Dosage: 10 MILLIGRAM, UNK
     Route: 065
  17. NOVAMINSULFON [Concomitant]
     Active Substance: METAMIZOLE
     Indication: PAIN
     Dosage: UNK, 1 DAILY
     Route: 065
  18. BRIVIACT [Suspect]
     Active Substance: BRIVARACETAM
     Dosage: 200 MILLIGRAM, DAILY, 100 MILLIGRAM, 2X/DAY (BID)
     Route: 065
     Dates: start: 201803
  19. VIMPAT [Suspect]
     Active Substance: LACOSAMIDE
     Dosage: 100 MILLIGRAM, DAILY (100 MG TABLET 2 IN MORNING 1 AT NOON AND 1 AT NIGHT )
     Route: 065
     Dates: start: 201803
  20. OXCARBAZEPINE. [Concomitant]
     Active Substance: OXCARBAZEPINE
     Indication: PRODUCT USED FOR UNKNOWN INDICATION
     Dosage: UNK
     Route: 065
  21. LEVETIRACETAM. [Suspect]
     Active Substance: LEVETIRACETAM
     Indication: EPILEPSY
     Dosage: 2000 MILLIGRAM, DAILY, 2000 UNK
     Route: 065
     Dates: start: 201704
  22. BRIVIACT [Suspect]
     Active Substance: BRIVARACETAM
     Indication: EPILEPSY
     Dosage: UNK, 50 MG AND 25 MG, 2X/DAY (BID)
     Route: 065
     Dates: start: 20180316
  23. BRIVIACT [Suspect]
     Active Substance: BRIVARACETAM
     Dosage: 50 MILLIGRAM, 2X/DAY (BID)
     Dates: start: 20180323
  24. DIAZEPAM. [Concomitant]
     Active Substance: DIAZEPAM
     Indication: PRODUCT USED FOR UNKNOWN INDICATION
     Dosage: UNK
     Route: 065
  25. DEKRISTOL [Concomitant]
     Active Substance: CHOLECALCIFEROL
     Indication: PRODUCT USED FOR UNKNOWN INDICATION
     Dosage: UNK, 2 WEEK
     Route: 065
  26. MIDAZOLAM [Concomitant]
     Active Substance: MIDAZOLAM HYDROCHLORIDE
     Indication: PRODUCT USED FOR UNKNOWN INDICATION
     Dosage: UNK
     Route: 065
  27. DIENOVEL [Concomitant]
     Active Substance: DIENOGEST\ETHINYL ESTRADIOL
     Indication: PRODUCT USED FOR UNKNOWN INDICATION
     Dosage: UNK, 1 DAILY
     Route: 065
  28. COLECALCIFEROL [Concomitant]
     Active Substance: CHOLECALCIFEROL
     Indication: PRODUCT USED FOR UNKNOWN INDICATION
     Dosage: UNK
     Route: 065

REACTIONS (4)
  - Seizure [Fatal]
  - Partial seizures [Unknown]
  - Drug ineffective [Unknown]
  - Off label use [Unknown]

NARRATIVE: CASE EVENT DATE: 2018
